FAERS Safety Report 10461858 (Version 1)
Quarter: 2014Q3

REPORT INFORMATION
  Report Type: Spontaneous
  Country: US (occurrence: None)
  Receive Date: 20140916
  Receipt Date: 20140916
  Transmission Date: 20150326
  Serious: Yes (Hospitalization)
  Sender: FDA-Public Use
  Company Number: 2014RT000102

PATIENT
  Age: 16 Year
  Sex: Male

DRUGS (6)
  1. LEVOCARNITINE. [Concomitant]
     Active Substance: LEVOCARNITINE
  2. PROCYSBI DELAYED-RELEASE [Suspect]
     Active Substance: CYSTEAMINE BITARTRATE
     Indication: AMINO ACID METABOLISM DISORDER
     Route: 048
     Dates: start: 20140806
  3. CALCITRIOL. [Concomitant]
     Active Substance: CALCITRIOL
  4. CYSTARAN (MERCAPTAMINE HYDROCHLORIDE) [Concomitant]
  5. SODIUM BICARBONATE (SODIUM BICARBONATE) [Concomitant]
  6. VITAMIN B (VITAMIN B COMPLEX) [Concomitant]

REACTIONS (2)
  - Nephrolithiasis [None]
  - Bone pain [None]

NARRATIVE: CASE EVENT DATE: 20140903
